FAERS Safety Report 12364397 (Version 1)
Quarter: 2016Q2

REPORT INFORMATION
  Report Type: Spontaneous
  Country: US (occurrence: US)
  Receive Date: 20160513
  Receipt Date: 20160513
  Transmission Date: 20160815
  Serious: No
  Sender: FDA-Public Use
  Company Number: US-LUNDBECK-DKLU2012451

PATIENT
  Sex: Female

DRUGS (1)
  1. NORTHERA [Suspect]
     Active Substance: DROXIDOPA
     Indication: PAIN IN EXTREMITY
     Route: 065

REACTIONS (2)
  - Feeling jittery [Unknown]
  - Drug ineffective [Unknown]
